FAERS Safety Report 7525525-1 (Version None)
Quarter: 2011Q2

REPORT INFORMATION
  Report Type: 
  Country: None (occurrence: None)
  Receive Date: 20110606
  Receipt Date: 20091121
  Transmission Date: 20111010
  Serious: Yes (Other)
  Sender: FDA-Public Use
  Company Number: US-BAYER-200940956NA

PATIENT
  Age: 67 Year
  Sex: Male
  Weight: 136 kg

DRUGS (26)
  1. AMOXICILLIN [Concomitant]
     Dosage: 500 MG
     Route: 048
  2. ASPIRIN [Concomitant]
     Dosage: 325 MG, QD
  3. ACTOS [Concomitant]
     Dosage: 30 MG, QD
     Route: 048
  4. PHENYLEPHRINE HCL [Concomitant]
     Dosage: 100 MG
     Route: 042
     Dates: start: 20071003
  5. DOBUTREX [Concomitant]
     Dosage: 2-4 MG
     Route: 042
     Dates: start: 20071003
  6. PREVACID [Concomitant]
     Dosage: 30 MG, QD
     Route: 048
  7. DIOVAN HCT [Concomitant]
     Dosage: 160 MG, QD
  8. ALLOPURINOL [Concomitant]
     Dosage: 200 MG, QD
  9. PLATELETS [Concomitant]
     Dosage: 18 UNITS
     Route: 042
     Dates: start: 20071004
  10. AMICAR [Concomitant]
     Dosage: 5 GM PUMP PRIME
     Route: 042
     Dates: start: 20071003, end: 20071003
  11. AMICAR [Concomitant]
     Dosage: 1 GM/HR FOR 5 HOURS
     Route: 042
     Dates: start: 20071003
  12. TRASYLOL [Suspect]
     Indication: CORONARY ARTERY BYPASS
     Dosage: 150 ML OVER 30 MINUTES
     Route: 042
     Dates: start: 20071004, end: 20071004
  13. BACTROBAN NASAL [Concomitant]
     Dosage: 1/2 TUBE IN EACH NOSTRIL THE NIGHT BEFORE AND MORNING OF SURGERY
     Route: 045
     Dates: start: 20071002
  14. CEFOXIN [Concomitant]
     Dosage: 2 GM
     Route: 042
     Dates: start: 20071003
  15. VASOPRESSIN [Concomitant]
     Dosage: 5-8 UNITS
     Route: 042
     Dates: start: 20071003
  16. METHICILLIN [Concomitant]
     Dosage: UNK
     Dates: start: 20070101
  17. TRASYLOL [Suspect]
     Indication: AORTIC VALVE REPLACEMENT
     Dosage: 50 ML PER HOUR FOR 4 HOURS
     Route: 042
     Dates: start: 20071004, end: 20071007
  18. NIASPAN [Concomitant]
     Dosage: 1000 MG, QD
     Route: 048
  19. AMICAR [Concomitant]
     Dosage: 5 GM LOADING DOSE
     Route: 042
     Dates: start: 20071003, end: 20071003
  20. XENICAL [Concomitant]
     Dosage: 100 MG, QD
     Route: 048
  21. NOREPINEPHRINE BITARTRATE [Concomitant]
     Dosage: 8 MG
     Route: 042
     Dates: start: 20071003
  22. RED BLOOD CELLS [Concomitant]
     Dosage: 11 UNITS
     Route: 042
     Dates: start: 20071004
  23. MORPHINE [Concomitant]
     Dosage: 4 MG
     Route: 042
     Dates: start: 20071004
  24. AMICAR [Concomitant]
     Dosage: 5 GM
     Route: 042
     Dates: start: 20071003, end: 20071003
  25. EPINEPHRINE [Concomitant]
     Dosage: .05 - 0.18 MCG
     Route: 042
     Dates: start: 20071003
  26. PLASMA [Concomitant]
     Dosage: 4 UNITS
     Route: 042
     Dates: start: 20071004

REACTIONS (12)
  - ANHEDONIA [None]
  - RENAL INJURY [None]
  - INJURY [None]
  - FEAR [None]
  - EMOTIONAL DISTRESS [None]
  - ANXIETY [None]
  - NEPHROPATHY [None]
  - RENAL FAILURE [None]
  - RENAL FAILURE CHRONIC [None]
  - UNEVALUABLE EVENT [None]
  - STRESS [None]
  - PAIN [None]
